FAERS Safety Report 12602965 (Version 3)
Quarter: 2016Q4

REPORT INFORMATION
  Report Type: Report from Study
  Country: US (occurrence: US)
  Receive Date: 20160728
  Receipt Date: 20161007
  Transmission Date: 20170207
  Serious: Yes (Hospitalization, Other)
  Sender: FDA-Public Use
  Company Number: US-BAYER-2016-010936

PATIENT
  Age: 58 Year
  Sex: Female
  Weight: 52.15 kg

DRUGS (8)
  1. ADEMPAS [Suspect]
     Active Substance: RIOCIGUAT
     Indication: PULMONARY ARTERIAL HYPERTENSION
     Dosage: UNK
     Route: 048
     Dates: start: 20140512
  2. OPSUMIT [Concomitant]
     Active Substance: MACITENTAN
  3. VELETRI [Concomitant]
     Active Substance: EPOPROSTENOL
  4. ADEMPAS [Suspect]
     Active Substance: RIOCIGUAT
     Indication: PULMONARY ARTERIAL HYPERTENSION
     Dosage: 2.5 MG, TID
     Route: 048
  5. ADEMPAS [Suspect]
     Active Substance: RIOCIGUAT
     Indication: PULMONARY ARTERIAL HYPERTENSION
     Dosage: 2.5 MG, TID
     Route: 048
  6. ADEMPAS [Suspect]
     Active Substance: RIOCIGUAT
     Indication: PULMONARY ARTERIAL HYPERTENSION
     Dosage: 2.5 MG, TID
     Route: 048
  7. ADEMPAS [Suspect]
     Active Substance: RIOCIGUAT
     Indication: PULMONARY ARTERIAL HYPERTENSION
     Dosage: 2.5 MG, TID
     Route: 048
     Dates: start: 20140512
  8. ADEMPAS [Suspect]
     Active Substance: RIOCIGUAT
     Indication: PULMONARY ARTERIAL HYPERTENSION
     Dosage: 2.5 MG, TID
     Route: 048

REACTIONS (12)
  - Pneumonia [None]
  - Pneumonia [None]
  - Weight decreased [Unknown]
  - Pneumonia [None]
  - Dyspnoea [Unknown]
  - Oral pain [Unknown]
  - Chest discomfort [Unknown]
  - Pain [Unknown]
  - Gastrointestinal haemorrhage [Recovered/Resolved]
  - Musculoskeletal discomfort [Unknown]
  - Dyspnoea [None]
  - Hospitalisation [Unknown]

NARRATIVE: CASE EVENT DATE: 20151027
